FAERS Safety Report 6878478-3 (Version None)
Quarter: 2010Q3

REPORT INFORMATION
  Report Type: 
  Country: None (occurrence: None)
  Receive Date: 20100728
  Receipt Date: 20100721
  Transmission Date: 20110219
  Serious: Yes (Other)
  Sender: FDA-Public Use
  Company Number: CH-MERCK-1007USA02578

PATIENT
  Age: 60 Year
  Sex: Male

DRUGS (12)
  1. CANCIDAS [Suspect]
     Indication: BRONCHITIS
     Route: 042
     Dates: start: 20100505, end: 20100511
  2. LEXOTANIL [Suspect]
     Route: 048
  3. VANCOMYCIN [Concomitant]
     Route: 042
  4. PREDNISONE [Concomitant]
     Indication: PROPHYLAXIS
     Route: 048
  5. TACROLIMUS [Concomitant]
     Indication: PROPHYLAXIS
     Route: 048
     Dates: start: 20070501
  6. HEPARIN [Concomitant]
     Route: 058
  7. ASPIRIN [Concomitant]
     Route: 065
  8. METOCLOPRAMIDE [Concomitant]
     Route: 065
  9. ALBUTEROL [Concomitant]
     Route: 065
  10. FLUTICASONE [Concomitant]
     Route: 065
  11. INSULIN, ISOPHANE [Concomitant]
     Route: 065
  12. LISINOPRIL [Concomitant]
     Route: 065

REACTIONS (1)
  - DELIRIUM [None]
